FAERS Safety Report 9921367 (Version 1)
Quarter: 2014Q1

REPORT INFORMATION
  Report Type: Report from Study
  Country: CA (occurrence: CA)
  Receive Date: 20140225
  Receipt Date: 20140225
  Transmission Date: 20141002
  Serious: Yes (Other)
  Sender: FDA-Public Use
  Company Number: CA-JNJFOC-20140213964

PATIENT
  Age: 53 Year
  Sex: Female
  Weight: 67.13 kg

DRUGS (1)
  1. REMICADE [Suspect]
     Indication: CROHN^S DISEASE
     Route: 042
     Dates: start: 20121017

REACTIONS (1)
  - Distal intestinal obstruction syndrome [Recovered/Resolved]
